FAERS Safety Report 8236862-X (Version None)
Quarter: 2012Q1

REPORT INFORMATION
  Report Type: 
  Country: None (occurrence: None)
  Receive Date: 20120327
  Receipt Date: 20111206
  Transmission Date: 20120608
  Serious: No
  Sender: FDA-Public Use
  Company Number: US-GLAXOSMITHKLINE-A0957555A

PATIENT

DRUGS (1)
  1. LAMICTAL XR [Suspect]
     Dosage: 200MG UNKNOWN
     Route: 065

REACTIONS (3)
  - PRODUCT QUALITY ISSUE [None]
  - IRRITABILITY [None]
  - DRUG INEFFECTIVE [None]
